FAERS Safety Report 8917219 (Version 3)
Quarter: 2012Q4

REPORT INFORMATION
  Report Type: 
  Country: US (occurrence: US)
  Receive Date: 20121120
  Receipt Date: 20121217
  Transmission Date: 20130627
  Serious: Yes (Other)
  Sender: FDA-Public Use
  Company Number: US-PFIZER INC-2012099026

PATIENT
  Age: 62 Year
  Sex: Female
  Weight: 132 kg

DRUGS (10)
  1. XALATAN [Suspect]
     Indication: INTRAOCULAR PRESSURE LOW
     Dosage: 1 drop in each eye daily every night
     Route: 047
  2. XALATAN [Suspect]
     Dosage: UNK
  3. LIVALO [Concomitant]
     Indication: BLOOD CHOLESTEROL ABNORMAL
     Dosage: 2 mg, daily
  4. SYNTHROID [Concomitant]
     Indication: THYROID DISORDER
     Dosage: 75 mg, daily
  5. METFORMIN [Concomitant]
     Indication: DIABETES
     Dosage: 1000 mg, 2x/day
  6. GABAPENTIN [Concomitant]
     Indication: DIABETIC NEUROPATHY
     Dosage: 300 mg, 3x/day
  7. LOSARTAN [Concomitant]
     Indication: BLOOD PRESSURE HIGH
     Dosage: 50 mg, daily
  8. SPIRONOLACTONE [Concomitant]
     Indication: BLOOD PRESSURE HIGH
     Dosage: 50 mg, daily
  9. CARVEDILOL [Concomitant]
     Indication: STENT PLACEMENT
     Dosage: 25 mg, 2x/day
  10. PLAVIX [Concomitant]
     Indication: STENT PLACEMENT
     Dosage: 75 mg, daily

REACTIONS (3)
  - Cerebrovascular accident [Unknown]
  - Visual impairment [Unknown]
  - Weight decreased [Unknown]
